FAERS Safety Report 26071675 (Version 1)
Quarter: 2025Q4

REPORT INFORMATION
  Report Type: Spontaneous
  Country: US (occurrence: US)
  Receive Date: 20251120
  Receipt Date: 20251120
  Transmission Date: 20260117
  Serious: No
  Sender: DR REDDYS
  Company Number: US-DRL-USA-USA/2025/10/016484

PATIENT

DRUGS (1)
  1. DIETARY SUPPLEMENT [Suspect]
     Active Substance: DIETARY SUPPLEMENT
     Indication: Product used for unknown indication

REACTIONS (1)
  - Headache [Unknown]
